FAERS Safety Report 8493230-3 (Version None)
Quarter: 2012Q3

REPORT INFORMATION
  Report Type: 
  Country: None (occurrence: None)
  Receive Date: 20120706
  Receipt Date: 20120703
  Transmission Date: 20120928
  Serious: Yes (Hospitalization)
  Sender: FDA-Public Use
  Company Number: PHEH2012US010331

PATIENT
  Sex: Female

DRUGS (2)
  1. BACLOFEN [Concomitant]
  2. GILENYA [Suspect]
     Indication: MULTIPLE SCLEROSIS
     Dosage: 0.5 MG, QD
     Route: 048

REACTIONS (4)
  - CARDIAC STRESS TEST ABNORMAL [None]
  - CHEST PAIN [None]
  - ASTHENIA [None]
  - NAUSEA [None]
